FAERS Safety Report 5660888-3 (Version None)
Quarter: 2008Q1

REPORT INFORMATION
  Report Type: 
  Country: None (occurrence: None)
  Receive Date: 20080311
  Receipt Date: 20080305
  Transmission Date: 20080703
  Serious: Yes (Other)
  Sender: FDA-Public Use
  Company Number: US-JNJFOC-20080301441

PATIENT
  Age: 59 Year
  Sex: Female
  Weight: 95.26 kg

DRUGS (2)
  1. EXTRA STRENGTH TYLENOL [Suspect]
     Route: 048
  2. EXTRA STRENGTH TYLENOL [Suspect]
     Indication: INFLAMMATION
     Dosage: DOSES AT 11PM, 7 AM, AND 11AM.
     Route: 048

REACTIONS (3)
  - ANAPHYLACTIC SHOCK [None]
  - OEDEMA MOUTH [None]
  - REACTION TO DRUG EXCIPIENTS [None]
